FAERS Safety Report 25888041 (Version 1)
Quarter: 2025Q4

REPORT INFORMATION
  Report Type: Spontaneous
  Country: US (occurrence: US)
  Receive Date: 20251007
  Receipt Date: 20251007
  Transmission Date: 20260118
  Serious: Yes (Other)
  Sender: STRIDES
  Company Number: US-STRIDES PHARMA UK LTD.-2025SP010157

PATIENT

DRUGS (5)
  1. PREDNISONE [Suspect]
     Active Substance: PREDNISONE
     Indication: Diffuse large B-cell lymphoma
     Dosage: PAR OF R- CHOP, RECEIVED 50% REDUCED DOSE OF PREDNISONE ON DAY 1 AND 15
     Route: 065
  2. RITUXIMAB [Suspect]
     Active Substance: RITUXIMAB
     Indication: Diffuse large B-cell lymphoma
     Dosage: PART OF R-CHOP, RECEIVED FULL DOSE RITUXIMAB ON DAY 1 UPTO SIX MONTHS
     Route: 065
  3. CYCLOPHOSPHAMIDE [Suspect]
     Active Substance: CYCLOPHOSPHAMIDE
     Indication: Diffuse large B-cell lymphoma
     Dosage: PART OF R- CHOP, RECEIVED 50% REDUCED DOSE OF CYCLOPHOSPHAMIDE ON DAY 1 AND 15
     Route: 065
  4. EPIRUBICIN [Suspect]
     Active Substance: EPIRUBICIN
     Indication: Diffuse large B-cell lymphoma
     Dosage: PART OF R- CHOP, RECEIVED 50% REDUCED DOSE OF DOXORUBICIN ON DAY 1 AND 15
     Route: 065
  5. ONCOVIN [Suspect]
     Active Substance: VINCRISTINE SULFATE
     Indication: Diffuse large B-cell lymphoma
     Dosage: PART OF R- CHOP, RECEIVED 50% REDUCED DOSE OF VINCRISTINE ON DAY 1 AND 15
     Route: 065

REACTIONS (1)
  - Malignant neoplasm progression [Unknown]
